FAERS Safety Report 11545036 (Version 6)
Quarter: 2015Q4

REPORT INFORMATION
  Report Type: Report from Study
  Country: BR (occurrence: BR)
  Receive Date: 20150924
  Receipt Date: 20151120
  Transmission Date: 20160304
  Serious: Yes (Hospitalization)
  Sender: FDA-Public Use
  Company Number: BR-BIOGENIDEC-2015BI129103

PATIENT
  Age: 34 Year
  Sex: Female

DRUGS (1)
  1. TYSABRI [Suspect]
     Active Substance: NATALIZUMAB
     Indication: RELAPSING-REMITTING MULTIPLE SCLEROSIS
     Route: 042
     Dates: start: 20150615, end: 201508

REACTIONS (10)
  - Disease progression [Unknown]
  - Altered state of consciousness [Not Recovered/Not Resolved]
  - Encephalitis [Unknown]
  - Asthenia [Not Recovered/Not Resolved]
  - Brain injury [Not Recovered/Not Resolved]
  - Respiratory failure [Not Recovered/Not Resolved]
  - Haematemesis [Not Recovered/Not Resolved]
  - Epistaxis [Not Recovered/Not Resolved]
  - Malaise [Not Recovered/Not Resolved]
  - Pyrexia [Not Recovered/Not Resolved]

NARRATIVE: CASE EVENT DATE: 201508
